FAERS Safety Report 24669461 (Version 2)
Quarter: 2024Q4

REPORT INFORMATION
  Report Type: Spontaneous
  Country: JO (occurrence: JO)
  Receive Date: 20241127
  Receipt Date: 20241210
  Transmission Date: 20250114
  Serious: Yes (Other)
  Sender: HIKMA
  Company Number: JO-HIKMA PHARMACEUTICALS-JO-H14001-24-10896

PATIENT
  Age: 58 Year
  Sex: Female

DRUGS (3)
  1. PROPRANOLOL [Suspect]
     Active Substance: PROPRANOLOL HYDROCHLORIDE
     Indication: Migraine prophylaxis
     Dosage: 3 DOSAGE FORM, QD
     Route: 048
     Dates: start: 2023
  2. LEVOTHYROXINE [Concomitant]
     Active Substance: LEVOTHYROXINE
     Indication: Hypothyroidism
     Dosage: 75 MICROGRAM, QD
     Route: 065
  3. AMITRIPTYLINE HYDROCHLORIDE [Concomitant]
     Active Substance: AMITRIPTYLINE HYDROCHLORIDE
     Indication: Migraine
     Dosage: UNKNOWN
     Route: 065

REACTIONS (5)
  - Foreign body in throat [Recovered/Resolved]
  - Throat irritation [Recovered/Resolved]
  - Dysphagia [Recovered/Resolved]
  - Condition aggravated [Unknown]
  - Product use complaint [Unknown]
